FAERS Safety Report 16721948 (Version 1)
Quarter: 2019Q3

REPORT INFORMATION
  Report Type: Spontaneous
  Country: CA (occurrence: CA)
  Receive Date: 20190820
  Receipt Date: 20190820
  Transmission Date: 20191005
  Serious: Yes (Other)
  Sender: FDA-Public Use
  Company Number: CA-TEVA-2019-CA-1093826

PATIENT
  Age: 40 Year
  Sex: Male

DRUGS (20)
  1. ENBREL [Suspect]
     Active Substance: ETANERCEPT
     Indication: PRODUCT USED FOR UNKNOWN INDICATION
     Route: 065
  2. HUMIRA [Suspect]
     Active Substance: ADALIMUMAB
     Indication: PRODUCT USED FOR UNKNOWN INDICATION
     Route: 058
  3. HUMIRA [Suspect]
     Active Substance: ADALIMUMAB
     Route: 058
  4. HYDROXYCHLOROQUINE SULFATE. [Suspect]
     Active Substance: HYDROXYCHLOROQUINE SULFATE
     Indication: PRODUCT USED FOR UNKNOWN INDICATION
     Route: 065
  5. METHOTREXATE. [Suspect]
     Active Substance: METHOTREXATE
     Route: 065
  6. REMICADE [Suspect]
     Active Substance: INFLIXIMAB
     Indication: PRODUCT USED FOR UNKNOWN INDICATION
     Route: 042
  7. SIMPONI [Suspect]
     Active Substance: GOLIMUMAB
     Indication: PRODUCT USED FOR UNKNOWN INDICATION
     Route: 058
  8. ACTEMRA [Suspect]
     Active Substance: TOCILIZUMAB
     Route: 065
  9. SIMPONI [Suspect]
     Active Substance: GOLIMUMAB
     Route: 058
  10. ACTEMRA [Suspect]
     Active Substance: TOCILIZUMAB
     Indication: PRODUCT USED FOR UNKNOWN INDICATION
     Route: 065
  11. ARAVA [Suspect]
     Active Substance: LEFLUNOMIDE
     Indication: PRODUCT USED FOR UNKNOWN INDICATION
     Route: 065
  12. ARAVA [Suspect]
     Active Substance: LEFLUNOMIDE
     Route: 048
  13. ORENCIA [Suspect]
     Active Substance: ABATACEPT
     Route: 065
  14. REMICADE [Suspect]
     Active Substance: INFLIXIMAB
     Route: 042
  15. METHOTREXATE. [Suspect]
     Active Substance: METHOTREXATE
     Indication: PRODUCT USED FOR UNKNOWN INDICATION
     Route: 065
  16. ANAKINRA [Suspect]
     Active Substance: ANAKINRA
     Indication: PRODUCT USED FOR UNKNOWN INDICATION
     Route: 065
  17. ANAKINRA [Suspect]
     Active Substance: ANAKINRA
     Route: 065
  18. ORENCIA [Suspect]
     Active Substance: ABATACEPT
     Indication: PRODUCT USED FOR UNKNOWN INDICATION
     Route: 065
  19. DESOXIMETASONE. [Concomitant]
     Active Substance: DESOXIMETASONE
     Indication: PRODUCT USED FOR UNKNOWN INDICATION
     Route: 048
  20. HYDROXYCHLOROQUINE SULFATE. [Suspect]
     Active Substance: HYDROXYCHLOROQUINE SULFATE
     Route: 065

REACTIONS (10)
  - Treatment failure [Not Recovered/Not Resolved]
  - Drug dependence [Not Recovered/Not Resolved]
  - Asthenia [Not Recovered/Not Resolved]
  - Drug use disorder [Not Recovered/Not Resolved]
  - Nausea [Not Recovered/Not Resolved]
  - Therapeutic product effect decreased [Not Recovered/Not Resolved]
  - Drug specific antibody present [Not Recovered/Not Resolved]
  - Gait inability [Not Recovered/Not Resolved]
  - Muscular weakness [Not Recovered/Not Resolved]
  - Rheumatoid arthritis [Not Recovered/Not Resolved]
